FAERS Safety Report 6081326-5 (Version None)
Quarter: 2009Q1

REPORT INFORMATION
  Report Type: 
  Country: None (occurrence: None)
  Receive Date: 20090212
  Receipt Date: 20090130
  Transmission Date: 20090719
  Serious: Yes (Hospitalization)
  Sender: FDA-Public Use
  Company Number: THYM-1000898

PATIENT
  Age: 4 Year
  Sex: Male

DRUGS (2)
  1. THYMOGLOBULIN [Suspect]
     Indication: HEART TRANSPLANT
     Dates: start: 20060101, end: 20060101
  2. THYMOGLOBULIN [Suspect]
     Indication: HEART TRANSPLANT
     Dates: start: 20090101, end: 20090101

REACTIONS (4)
  - CARDIOGENIC SHOCK [None]
  - HAEMODYNAMIC INSTABILITY [None]
  - HEART TRANSPLANT REJECTION [None]
  - RASH [None]
